FAERS Safety Report 8565457-3 (Version None)
Quarter: 2012Q3

REPORT INFORMATION
  Report Type: 
  Country: None (occurrence: None)
  Receive Date: 20120803
  Receipt Date: 20120723
  Transmission Date: 20120928
  Serious: Yes (Hospitalization)
  Sender: FDA-Public Use
  Company Number: FR-ROCHE-1091667

PATIENT
  Age: 73 Year
  Sex: Male

DRUGS (6)
  1. SOLU-MEDROL [Suspect]
     Indication: PREMEDICATION
     Route: 042
     Dates: start: 20120627, end: 20120627
  2. OXALIPLATIN [Suspect]
     Indication: COLON CANCER METASTATIC
     Route: 042
     Dates: start: 20120627
  3. MAGNESIUM SULFATE [Suspect]
     Indication: PREMEDICATION
     Route: 042
     Dates: start: 20120627, end: 20120627
  4. CALCIUM GLUCONATE [Suspect]
     Indication: PREMEDICATION
     Route: 042
     Dates: start: 20120627, end: 20120627
  5. AVASTIN [Suspect]
     Indication: COLON CANCER METASTATIC
     Route: 042
     Dates: start: 20120627
  6. ZOFRAN [Suspect]
     Indication: PREMEDICATION
     Route: 042
     Dates: start: 20120627, end: 20120627

REACTIONS (1)
  - ANGIOEDEMA [None]
